FAERS Safety Report 12134276 (Version 1)
Quarter: 2016Q1

REPORT INFORMATION
  Report Type: Report from Study
  Country: NL (occurrence: NL)
  Receive Date: 20160301
  Receipt Date: 20160301
  Transmission Date: 20160526
  Serious: Yes (Death, Other)
  Sender: FDA-Public Use
  Company Number: NL-GLAXOSMITHKLINE-NL2016GSK027286

PATIENT
  Sex: Male
  Weight: 72 kg

DRUGS (2)
  1. ZANAMIVIR [Suspect]
     Active Substance: ZANAMIVIR
     Dosage: UNK
     Route: 055
     Dates: start: 20160216, end: 20160219
  2. OSELTAMIVIR [Concomitant]
     Active Substance: OSELTAMIVIR
     Dosage: UNK
     Dates: start: 20160209, end: 20160218

REACTIONS (1)
  - Death [Fatal]
